FAERS Safety Report 11169520 (Version 2)
Quarter: 2018Q1

REPORT INFORMATION
  Report Type: Spontaneous
  Country: US (occurrence: US)
  Receive Date: 20150605
  Receipt Date: 20180329
  Transmission Date: 20180508
  Serious: Yes (Hospitalization)
  Sender: FDA-Public Use
  Company Number: US-ENDO PHARMACEUTICALS INC.-2015-001198

PATIENT
  Age: 59 Year
  Sex: Male
  Weight: 81.72 kg

DRUGS (1)
  1. TESTIM [Suspect]
     Active Substance: TESTOSTERONE
     Indication: BLOOD TESTOSTERONE DECREASED
     Dosage: 50 MG, DAILY
     Route: 062
     Dates: start: 20100730, end: 201301

REACTIONS (4)
  - Coronary artery disease [Unknown]
  - Acute myocardial infarction [Unknown]
  - Cardiogenic shock [Unknown]
  - Chest pain [Unknown]

NARRATIVE: CASE EVENT DATE: 20130608
